FAERS Safety Report 7233636-3 (Version None)
Quarter: 2011Q1

REPORT INFORMATION
  Report Type: 
  Country: None (occurrence: None)
  Receive Date: 20110119
  Receipt Date: 20110113
  Transmission Date: 20110831
  Serious: Yes (Hospitalization)
  Sender: FDA-Public Use
  Company Number: DK-MERCK-1012DNK00005

PATIENT
  Age: 47 Year
  Sex: Male

DRUGS (7)
  1. ENALAPRIL MALEATE [Concomitant]
     Indication: CARDIAC FAILURE
     Route: 048
     Dates: start: 20060101, end: 20101215
  2. AMIODARONE HYDROCHLORIDE [Suspect]
     Indication: CONDUCTION DISORDER
     Route: 048
     Dates: start: 20100928, end: 20101210
  3. BISOPROLOL [Concomitant]
     Indication: CARDIAC FAILURE
     Route: 048
     Dates: start: 20060101, end: 20101215
  4. FUSIDATE SODIUM [Suspect]
     Indication: CARDIAC INFECTION
     Route: 048
     Dates: start: 20101109, end: 20101215
  5. SERTRALINE HYDROCHLORIDE [Concomitant]
     Indication: DEPRESSION
     Route: 048
     Dates: start: 20090101, end: 20101215
  6. ZOCOR [Suspect]
     Indication: HYPERCHOLESTEROLAEMIA
     Route: 048
     Dates: start: 20060101, end: 20101215
  7. DICLOXACILLIN SODIUM [Concomitant]
     Indication: INFECTION
     Route: 048
     Dates: start: 20101211

REACTIONS (3)
  - DRUG INTERACTION [None]
  - RHABDOMYOLYSIS [None]
  - RENAL FAILURE ACUTE [None]
